FAERS Safety Report 8957842 (Version 2)
Quarter: 2013Q3

REPORT INFORMATION
  Report Type: Report from Study
  Country: ZA (occurrence: ZA)
  Receive Date: 20121211
  Receipt Date: 20130821
  Transmission Date: 20140515
  Serious: Yes (Death, Hospitalization)
  Sender: FDA-Public Use
  Company Number: ZA-ROCHE-1166806

PATIENT
  Age: 78 Year
  Sex: Female

DRUGS (6)
  1. RECORMON [Suspect]
     Indication: NEPHROGENIC ANAEMIA
     Route: 065
     Dates: end: 2008
  2. RECORMON [Suspect]
     Route: 065
     Dates: start: 201210
  3. RECORMON [Suspect]
     Route: 065
     Dates: start: 201302
  4. MIRCERA [Suspect]
     Indication: PRODUCT USED FOR UNKNOWN INDICATION
     Route: 058
     Dates: start: 201102
  5. MIRCERA [Suspect]
     Route: 058
     Dates: start: 201105
  6. VENOFER [Concomitant]
     Route: 042

REACTIONS (2)
  - Ventricular tachycardia [Unknown]
  - Death [Fatal]
